FAERS Safety Report 14187719 (Version 1)
Quarter: 2017Q4

REPORT INFORMATION
  Report Type: Spontaneous
  Country: US (occurrence: US)
  Receive Date: 20171114
  Receipt Date: 20171114
  Transmission Date: 20180321
  Serious: No
  Sender: FDA-Public Use
  Company Number: US-BAUSCH-BL-2017-002326

PATIENT
  Age: 50 Year
  Sex: Female
  Weight: 63.56 kg

DRUGS (2)
  1. RETIN-A [Suspect]
     Active Substance: TRETINOIN
     Indication: ACNE
     Dosage: ONE APPLICATION ONCE DAILY
     Route: 061
     Dates: start: 2015, end: 2015
  2. RETIN-A [Suspect]
     Active Substance: TRETINOIN
     Dosage: ONE APPLICATION ONCE DAILY
     Route: 061
     Dates: start: 20170126

REACTIONS (2)
  - Erythema [Not Recovered/Not Resolved]
  - Hair growth abnormal [Not Recovered/Not Resolved]

NARRATIVE: CASE EVENT DATE: 20170127
